FAERS Safety Report 9752696 (Version 1)
Quarter: 2013Q4

REPORT INFORMATION
  Report Type: Spontaneous
  Country: BR (occurrence: None)
  Receive Date: 20131211
  Receipt Date: 20131211
  Transmission Date: 20140711
  Serious: Yes (Hospitalization, Other)
  Sender: FDA-Public Use
  Company Number: DSJ-2013-26735

PATIENT
  Sex: Female

DRUGS (1)
  1. BENICAR HCT [Suspect]
     Indication: HYPERTENSION
     Dosage: 40/12.5 MG (1 IN 1 D), PER ORAL
     Dates: start: 2008

REACTIONS (8)
  - Abdominal pain [None]
  - Gallbladder disorder [None]
  - Renal failure [None]
  - Weight decreased [None]
  - Overdose [None]
  - Drug ineffective [None]
  - Weight increased [None]
  - Fatigue [None]
